FAERS Safety Report 15116453 (Version 3)
Quarter: 2018Q3

REPORT INFORMATION
  Report Type: Report from Study
  Country: GB (occurrence: GB)
  Receive Date: 20180706
  Receipt Date: 20180720
  Transmission Date: 20181010
  Serious: Yes (Hospitalization, Other)
  Sender: FDA-Public Use
  Company Number: GB-PFIZER INC-2018260295

PATIENT
  Age: 17 Month
  Weight: 11.6 kg

DRUGS (16)
  1. CYCLOPHOSPHAMIDE. [Suspect]
     Active Substance: CYCLOPHOSPHAMIDE
     Indication: ACUTE MYELOID LEUKAEMIA
     Dosage: 500 MG, DAILY
     Route: 042
     Dates: start: 20180204, end: 20180207
  2. AMBISOME [Concomitant]
     Active Substance: AMPHOTERICIN B
     Indication: PROPHYLAXIS
     Dosage: 10 UG, DAILY
     Dates: start: 20180214, end: 201802
  3. BUSULFAN. [Suspect]
     Active Substance: BUSULFAN
     Indication: ACUTE MYELOID LEUKAEMIA
     Dosage: 24 MG, 2X/DAY
     Route: 042
     Dates: start: 20180130, end: 20180204
  4. LEVOMEPROMAZINE [Concomitant]
     Active Substance: LEVOMEPROMAZINE
     Indication: VOMITING
  5. TRANEXAMIC ACID. [Concomitant]
     Active Substance: TRANEXAMIC ACID
     Indication: INJURY
     Dosage: 250 UG, 1X/DAY
     Dates: start: 20180216, end: 20180216
  6. GEMTUZUMAB OZOGAMICIN [Suspect]
     Active Substance: GEMTUZUMAB OZOGAMICIN
     Indication: ACUTE MYELOID LEUKAEMIA
     Dosage: 0.98 MG, UNK
     Route: 042
     Dates: start: 20171107, end: 20171110
  7. FUROSEMIDE. [Concomitant]
     Active Substance: FUROSEMIDE
     Indication: FLUID RETENTION
     Dosage: 10 MG, AS NEEDED
     Dates: start: 20180220, end: 201803
  8. CALTEN [Concomitant]
     Active Substance: CALCITRIOL\CALCIUM CARBONATE\ZINC
     Indication: DERMATITIS DIAPER
     Dosage: UNK
     Route: 061
     Dates: start: 20180216, end: 20180218
  9. CHLORPHENAMINE [Concomitant]
     Active Substance: CHLORPHENIRAMINE MALEATE
     Indication: PREMEDICATION
     Dosage: 2.5 MG, AS NEEDED
     Dates: start: 20180205
  10. BENZYDAMINE HYDROCHLORIDE [Concomitant]
     Active Substance: BENZYDAMINE HYDROCHLORIDE
     Indication: PHARYNGEAL INFLAMMATION
     Dosage: UNK, DAILY
     Dates: start: 20180213
  11. PARACETAMOL [Concomitant]
     Active Substance: ACETAMINOPHEN
     Indication: PYREXIA
     Dosage: 150 MG, AS NEEDED
     Dates: start: 20180213
  12. ITRACONAZOLE. [Concomitant]
     Active Substance: ITRACONAZOLE
     Indication: PROPHYLAXIS
     Dosage: 25 MG, 2X/DAY
     Dates: start: 20180226
  13. UROKINASE [Concomitant]
     Active Substance: UROKINASE
     Indication: DEVICE ISSUE
     Dosage: 500 ML, AS NEEDED
     Dates: start: 20180207, end: 20180207
  14. MEDI?HONEY [Concomitant]
     Indication: DERMATITIS DIAPER
     Dosage: UNK, DAILY
     Route: 061
     Dates: start: 20180203, end: 20180217
  15. LEVOMEPROMAZINE [Concomitant]
     Active Substance: LEVOMEPROMAZINE
     Indication: NAUSEA
     Dosage: 0.5 UG, 1X/DAY
     Dates: start: 20180209, end: 201802
  16. VANCOMYCIN [Concomitant]
     Active Substance: VANCOMYCIN
     Indication: PROPHYLAXIS
     Dosage: 180 ML, 1X/DAY
     Dates: start: 20180213, end: 20180216

REACTIONS (1)
  - Venoocclusive disease [Unknown]

NARRATIVE: CASE EVENT DATE: 20180302
